FAERS Safety Report 8605989-2 (Version None)
Quarter: 2012Q3

REPORT INFORMATION
  Report Type: 
  Country: None (occurrence: None)
  Receive Date: 20120820
  Receipt Date: 20120807
  Transmission Date: 20120928
  Serious: Yes (Hospitalization, Other)
  Sender: FDA-Public Use
  Company Number: FR-ROCHE-1098488

PATIENT
  Age: 28 Year
  Sex: Male

DRUGS (4)
  1. MESTINON [Concomitant]
     Route: 048
  2. PRIVIGEN [Suspect]
     Indication: PRODUCT USED FOR UNKNOWN INDICATION
     Dosage: STRENGTH 100 MG/ML
     Route: 042
     Dates: start: 20120704, end: 20120708
  3. CELLCEPT [Suspect]
     Indication: PRODUCT USED FOR UNKNOWN INDICATION
     Route: 048
     Dates: start: 20120503, end: 20120708
  4. OLMESARTAN MEDOXOMIL [Concomitant]
     Route: 048

REACTIONS (1)
  - HAEMOLYTIC ANAEMIA [None]
